FAERS Safety Report 9959349 (Version 3)
Quarter: 2014Q3

REPORT INFORMATION
  Report Type: Spontaneous
  Country: US (occurrence: None)
  Receive Date: 20140228
  Receipt Date: 20140922
  Transmission Date: 20150326
  Serious: Yes (Death, Hospitalization)
  Sender: FDA-Public Use
  Company Number: 2014-US-002080

PATIENT
  Age: 85 Year
  Sex: Male

DRUGS (13)
  1. ADDERALL [Concomitant]
     Active Substance: AMPHETAMINE ASPARTATE\AMPHETAMINE SULFATE\DEXTROAMPHETAMINE SACCHARATE\DEXTROAMPHETAMINE SULFATE
  2. XYREM [Suspect]
     Active Substance: SODIUM OXYBATE
     Indication: NARCOLEPSY
     Route: 048
     Dates: start: 200712
  3. FINASTERIDE (FINASTERIDE) [Concomitant]
     Active Substance: FINASTERIDE
  4. CARVEDILOL (CARVEDILOL) [Concomitant]
     Active Substance: CARVEDILOL
  5. NUVIGIL [Concomitant]
     Active Substance: ARMODAFINIL
  6. SENNA [Concomitant]
     Active Substance: SENNA LEAF\SENNOSIDES\SENNOSIDES A AND B
  7. IMDUR [Concomitant]
     Active Substance: ISOSORBIDE MONONITRATE
  8. MIRALAX (MARCROGOL 3350) [Concomitant]
  9. XYREM [Suspect]
     Active Substance: SODIUM OXYBATE
     Indication: CATAPLEXY
     Route: 048
     Dates: start: 200712
  10. FLOMAX [Concomitant]
     Active Substance: TAMSULOSIN HYDROCHLORIDE
  11. SYNTHROID [Concomitant]
     Active Substance: LEVOTHYROXINE SODIUM
  12. LASIX [Concomitant]
     Active Substance: FUROSEMIDE
  13. HEPARIN [Concomitant]
     Active Substance: HEPARIN SODIUM

REACTIONS (4)
  - Fall [None]
  - Agitation [None]
  - Pleural effusion [None]
  - Urinary tract infection [None]

NARRATIVE: CASE EVENT DATE: 20140129
